FAERS Safety Report 8176856-6 (Version None)
Quarter: 2012Q1

REPORT INFORMATION
  Report Type: 
  Country: None (occurrence: None)
  Receive Date: 20120124
  Receipt Date: 20110627
  Transmission Date: 20120608
  Serious: Yes (Hospitalization)
  Sender: FDA-Public Use
  Company Number: WAES 1107USA00063

PATIENT
  Age: 13 Year
  Sex: Male

DRUGS (1)
  1. INVANZ [Suspect]
     Indication: URINARY TRACT INFECTION
     Dosage: 1 GM/1X/IV
     Route: 042
     Dates: start: 20110626, end: 20110626

REACTIONS (1)
  - RASH [None]
